FAERS Safety Report 5354681-9 (Version None)
Quarter: 2007Q2

REPORT INFORMATION
  Report Type: 
  Country: None (occurrence: None)
  Receive Date: 20070612
  Receipt Date: 20070529
  Transmission Date: 20071010
  Serious: Yes (Other)
  Sender: FDA-Public Use
  Company Number: GB-MERCK-0612USA02318

PATIENT
  Age: 81 Year
  Sex: Male
  Weight: 75 kg

DRUGS (5)
  1. PRINIVIL [Suspect]
     Indication: HYPERTENSION
     Route: 048
     Dates: start: 20061104, end: 20061108
  2. ATENOLOL [Concomitant]
     Indication: BLOOD PRESSURE INCREASED
     Route: 048
     Dates: start: 20051114
  3. LERCANIDIPINE [Concomitant]
     Indication: BLOOD PRESSURE INCREASED
     Route: 065
     Dates: start: 20060601
  4. OMEPRAZOLE [Concomitant]
     Route: 048
     Dates: start: 20051114
  5. ACETAMINOPHEN [Concomitant]
     Route: 065

REACTIONS (1)
  - ANGIOEDEMA [None]
